FAERS Safety Report 20835626 (Version 1)
Quarter: 2022Q2

REPORT INFORMATION
  Report Type: Spontaneous
  Country: ML (occurrence: ML)
  Receive Date: 20220516
  Receipt Date: 20220516
  Transmission Date: 20220721
  Serious: Yes (Hospitalization, Other)
  Sender: FDA-Public Use
  Company Number: ML-NOVARTISPH-NVSC2022ML081656

PATIENT
  Age: 20 Year
  Sex: Male

DRUGS (5)
  1. TEGRETOL [Suspect]
     Active Substance: CARBAMAZEPINE
     Indication: Schizophrenia
     Dosage: 100 MG, BID
     Route: 048
  2. TEGRETOL [Suspect]
     Active Substance: CARBAMAZEPINE
     Indication: Affect lability
  3. TEGRETOL [Suspect]
     Active Substance: CARBAMAZEPINE
     Indication: Aggression
  4. TEGRETOL [Suspect]
     Active Substance: CARBAMAZEPINE
     Indication: Insomnia
  5. OLANZAPINE [Suspect]
     Active Substance: OLANZAPINE
     Indication: Product used for unknown indication
     Dosage: UNK
     Route: 065

REACTIONS (3)
  - Stevens-Johnson syndrome [Recovering/Resolving]
  - Dermatitis bullous [Recovering/Resolving]
  - Skin exfoliation [Recovering/Resolving]
